FAERS Safety Report 20219931 (Version 1)
Quarter: 2021Q4

REPORT INFORMATION
  Report Type: Spontaneous
  Country: US (occurrence: US)
  Receive Date: 20211222
  Receipt Date: 20211222
  Transmission Date: 20220303
  Serious: Yes (Hospitalization, Other)
  Sender: FDA-Public Use
  Company Number: US-009507513-2112USA006487

PATIENT
  Age: 79 Year
  Sex: Male

DRUGS (1)
  1. ISENTRESS [Suspect]
     Active Substance: RALTEGRAVIR POTASSIUM
     Indication: HIV infection
     Route: 048

REACTIONS (3)
  - Sepsis [Not Recovered/Not Resolved]
  - Cellulitis [Not Recovered/Not Resolved]
  - Pneumonia [Not Recovered/Not Resolved]
